FAERS Safety Report 9007809 (Version 1)
Quarter: 2013Q1

REPORT INFORMATION
  Report Type: Spontaneous
  Country: US (occurrence: US)
  Receive Date: 20130111
  Receipt Date: 20130111
  Transmission Date: 20140127
  Serious: Yes (Other)
  Sender: FDA-Public Use
  Company Number: US-009507513-0907USA03806

PATIENT
  Age: 3 Year
  Sex: Female
  Weight: 13.61 kg

DRUGS (1)
  1. SINGULAIR [Suspect]
     Indication: MULTIPLE ALLERGIES
     Dosage: 1 PACKET OF GRANUALS, QD
     Route: 048
     Dates: start: 20081001, end: 20081211

REACTIONS (5)
  - Affect lability [Unknown]
  - Disturbance in attention [Unknown]
  - Enuresis [Unknown]
  - Nightmare [Unknown]
  - Aggression [Unknown]
